FAERS Safety Report 9245200 (Version 1)
Quarter: 2013Q1

REPORT INFORMATION
  Report Type: Spontaneous
  Country: US (occurrence: None)
  Receive Date: 20121130
  Receipt Date: 20121130
  Transmission Date: 20140127
  Serious: Yes (Other)
  Sender: FDA-Public Use
  Company Number: PHH2012US007903

PATIENT
  Age: 74 Year
  Sex: Female

DRUGS (2)
  1. TEKTURNA [Suspect]
     Indication: HYPERTENSION
     Dates: start: 20110511
  2. NORVASC (AMLODIPINE BESILATE) [Suspect]
     Dates: start: 20110512

REACTIONS (2)
  - Convulsion [None]
  - Depression [None]
